FAERS Safety Report 12364202 (Version 1)
Quarter: 2016Q2

REPORT INFORMATION
  Report Type: Spontaneous
  Country: HK (occurrence: HK)
  Receive Date: 20160513
  Receipt Date: 20160513
  Transmission Date: 20160815
  Serious: Yes (Death)
  Sender: FDA-Public Use
  Company Number: HK-BAYER-2016-052694

PATIENT
  Age: 46 Year
  Sex: Male

DRUGS (4)
  1. MORPHINE SULFATE. [Concomitant]
     Active Substance: MORPHINE SULFATE
     Dosage: 10 MG, QID PRN
     Route: 048
  2. PANTOLOC [Concomitant]
     Active Substance: PANTOPRAZOLE SODIUM
     Dosage: 40 MG, HS
  3. GABAPENTIN. [Concomitant]
     Active Substance: GABAPENTIN
     Dosage: 300 MG, BID
  4. STIVARGA [Suspect]
     Active Substance: REGORAFENIB
     Indication: RECTAL CANCER METASTATIC
     Dosage: 80 MG, QD FOR 2 WEEKS WITH 1 WEEK OFF
     Route: 048
     Dates: start: 20150723, end: 20150825

REACTIONS (4)
  - Rectal cancer metastatic [Fatal]
  - Alanine aminotransferase increased [Fatal]
  - Hyperbilirubinaemia [Fatal]
  - Bile duct obstruction [Fatal]
